FAERS Safety Report 16462162 (Version 1)
Quarter: 2019Q2

REPORT INFORMATION
  Report Type: Spontaneous
  Country: DE (occurrence: DE)
  Receive Date: 20190621
  Receipt Date: 20190621
  Transmission Date: 20190711
  Serious: Yes (Other)
  Sender: FDA-Public Use
  Company Number: PHHY2019DE139776

PATIENT
  Age: 47 Year
  Sex: Female
  Weight: 65 kg

DRUGS (12)
  1. ASPIRIN. [Concomitant]
     Active Substance: ASPIRIN
     Indication: PROPHYLAXIS
     Dosage: 100 MG, QD (1ST TRIMESTER, 2.4-34 GESTATIONAL WEEK)
     Route: 048
  2. COLECALCIFEROL [Concomitant]
     Active Substance: CHOLECALCIFEROL
     Indication: VITAMIN D DEFICIENCY
     Dosage: UNK 20000 [I.E./WK ] (1ST TRIMESTER, 0-6.6 GESTATIONAL WEEK)
     Route: 048
  3. CLEXANE [Concomitant]
     Active Substance: ENOXAPARIN SODIUM
     Indication: PROPHYLAXIS OF ABORTION
     Dosage: UNK (1ST TRIMESTER-.4. - 6. GESTATIONAL WEEK)
     Route: 058
  4. ACTRAPID [Concomitant]
     Active Substance: INSULIN HUMAN
     Indication: GESTATIONAL DIABETES
     Dosage: STRENGTH:100 I.E./ML (3RD TRIMESTER:30.- 35.5 GESTATIONAL WEEK)
     Route: 058
  5. FAMENITA [Concomitant]
     Active Substance: PROGESTERONE
     Indication: PROPHYLAXIS OF ABORTION
     Dosage: UNK 600 [MG/D (3X200) ] (1ST TRIMESTER, 2-12 GESTATIONAL WEEK)
     Route: 067
  6. QUETIAPINE. [Suspect]
     Active Substance: QUETIAPINE
     Indication: DEPRESSION
     Dosage: UNK 225 [MG/D (BIS 150 MG/D, 100-150 RET., 50-75 UNRETARD.) ]
     Route: 048
  7. PROLUTEX [Concomitant]
     Active Substance: PROGESTERONE
     Indication: PROPHYLAXIS OF ABORTION
     Dosage: 200 MG, QD (1ST TRIMESTER-4.6-5.5 GESTATIONAL WEEK)
     Route: 058
  8. VAXIGRIP [Concomitant]
     Active Substance: INFLUENZA VIRUS VACCINE
     Indication: IMMUNISATION
     Dosage: (3RD TRIMESTER-33-34 GESTATIONAL WEEK)
     Route: 030
  9. PROLUTON [Concomitant]
     Active Substance: HYDROXYPROGESTERONE CAPROATE
     Indication: PROPHYLAXIS OF ABORTION
     Dosage: UNK (500 [MG/D (ALLE 3 TAGE) ] (1ST TRIMESTER 2.4-5.5 GESTATIONAL WEEK)
     Route: 030
  10. L-THYROXIN [Concomitant]
     Active Substance: LEVOTHYROXINE SODIUM
     Indication: HYPOTHYROIDISM
     Dosage: UNK 100 [?G/D (BIS 50 ?G/D) ] (1ST TRIMESTER, 0-32.3 GESTATIONAL WEEK)
     Route: 048
  11. XYLOMETAZOLINE [Concomitant]
     Active Substance: XYLOMETAZOLINE
     Indication: NASAL CONGESTION
     Dosage: UNK (3 RD TRIMESTER-28-39.3 GESTATIONAL WEEK)
     Route: 045
  12. PREDNISOLON [Concomitant]
     Active Substance: PREDNISOLONE
     Indication: INFERTILITY FEMALE
     Dosage: UNK 15 [MG/D (BIS 5) ] (1ST TRIMESTER, 2-6.3 GESTATIONAL WEEK)
     Route: 048

REACTIONS (3)
  - Exposure during pregnancy [Unknown]
  - Gestational diabetes [Recovered/Resolved]
  - Polyhydramnios [Recovered/Resolved]
